FAERS Safety Report 19952570 (Version 1)
Quarter: 2021Q4

REPORT INFORMATION
  Report Type: Spontaneous
  Country: CN (occurrence: CN)
  Receive Date: 20211013
  Receipt Date: 20211013
  Transmission Date: 20220303
  Serious: Yes (Other)
  Sender: FDA-Public Use
  Company Number: CN-BAXTER-2021BAX029003

PATIENT
  Age: 42 Year
  Sex: Female
  Weight: 47 kg

DRUGS (4)
  1. CYCLOPHOSPHAMIDE [Suspect]
     Active Substance: CYCLOPHOSPHAMIDE
     Indication: Invasive ductal breast carcinoma
     Dosage: CYCLOPHOSPHAMIDE 0.8G + 0.9 % SODIUM CHLORIDE 100ML; CA REGIMEN
     Route: 041
     Dates: start: 20190506, end: 20190506
  2. SODIUM CHLORIDE [Suspect]
     Active Substance: SODIUM CHLORIDE
     Indication: Medication dilution
     Dosage: CYCLOPHOSPHAMIDE 0.8G + 0.9 % SODIUM CHLORIDE 100ML
     Route: 041
     Dates: start: 20190506, end: 20190506
  3. DEXTROSE [Suspect]
     Active Substance: DEXTROSE
     Indication: Medication dilution
     Dosage: EPIRUBICIN HYDROCHLORIDE 100ML +5% GLUCOSE 100ML
     Route: 041
     Dates: start: 20190506, end: 20190506
  4. EPIRUBICIN HYDROCHLORIDE [Suspect]
     Active Substance: EPIRUBICIN HYDROCHLORIDE
     Indication: Invasive ductal breast carcinoma
     Dosage: EPIRUBICIN HYDROCHLORIDE 100ML +5% GLUCOSE 100ML
     Route: 041
     Dates: start: 20190506, end: 20190506

REACTIONS (2)
  - Nausea [Recovering/Resolving]
  - Vomiting [Recovering/Resolving]

NARRATIVE: CASE EVENT DATE: 20190506
